FAERS Safety Report 24039416 (Version 1)
Quarter: 2024Q3

REPORT INFORMATION
  Report Type: Spontaneous
  Country: US (occurrence: US)
  Receive Date: 20240702
  Receipt Date: 20240702
  Transmission Date: 20241017
  Serious: No
  Sender: SANOFI AVENTIS
  Company Number: US-SA-SAC20240624000419

PATIENT
  Sex: Male

DRUGS (2)
  1. DUPIXENT [Suspect]
     Active Substance: DUPILUMAB
     Indication: Dermatitis atopic
     Dosage: 300 MG, QOW
     Route: 058
     Dates: start: 2021
  2. TESTOSTERONE [Concomitant]
     Active Substance: TESTOSTERONE
     Dosage: UNK, QOW

REACTIONS (3)
  - Dermatitis atopic [Not Recovered/Not Resolved]
  - Eczema [Not Recovered/Not Resolved]
  - Rash macular [Not Recovered/Not Resolved]

NARRATIVE: CASE EVENT DATE: 20240620
